FAERS Safety Report 25942128 (Version 1)
Quarter: 2025Q4

REPORT INFORMATION
  Report Type: Spontaneous
  Country: EU (occurrence: EU)
  Receive Date: 20251020
  Receipt Date: 20251020
  Transmission Date: 20260117
  Serious: Yes (Other)
  Sender: JOHNSON AND JOHNSON
  Company Number: EU-BAYER-2025A138372

PATIENT
  Age: 77 Year
  Sex: Male

DRUGS (1)
  1. XARELTO [Suspect]
     Active Substance: RIVAROXABAN
     Indication: Cardiovascular disorder
     Dosage: 10 MG, QD
     Route: 048

REACTIONS (5)
  - Cardiac pacemaker insertion [Unknown]
  - Bipolar disorder [Unknown]
  - Scab [Unknown]
  - Petechiae [Unknown]
  - Acne [Unknown]
